FAERS Safety Report 8902590 (Version 1)
Quarter: 2012Q4

REPORT INFORMATION
  Report Type: 
  Country: JP (occurrence: JP)
  Receive Date: 20121112
  Receipt Date: 20121112
  Transmission Date: 20130627
  Serious: Yes (Death, Life-Threatening, Other)
  Sender: FDA-Public Use
  Company Number: PHHY2012JP083582

PATIENT
  Age: 87 Year
  Sex: Female
  Weight: 148 kg

DRUGS (7)
  1. RIFAMPICIN SANDOZ [Suspect]
     Indication: PULMONARY TUBERCULOSIS
     Dosage: 450 mg, daily
     Route: 048
     Dates: start: 20120814
  2. RIFAMPICIN SANDOZ [Suspect]
     Indication: TUBERCULOUS PLEURISY
  3. ISCOTIN [Suspect]
     Indication: PULMONARY TUBERCULOSIS
     Dosage: 300 mg, daily
     Route: 048
     Dates: start: 20120814
  4. ISCOTIN [Suspect]
     Indication: TUBERCULOUS PLEURISY
  5. PYDOXAL [Concomitant]
     Indication: NEUROPATHY PERIPHERAL
     Dosage: 40 mg, UNK
     Route: 048
     Dates: start: 20120814, end: 20120903
  6. CRAVIT [Concomitant]
     Indication: PULMONARY TUBERCULOSIS
     Dosage: 250 mg, daily
     Route: 048
     Dates: start: 20120814, end: 20120911
  7. STREPTOMYCIN SULFATE [Concomitant]
     Indication: PULMONARY TUBERCULOSIS
     Dosage: 0.5 g, UNK
     Route: 030
     Dates: start: 20120818, end: 20120906

REACTIONS (7)
  - Cardiac arrest [Fatal]
  - Cardiac failure [Fatal]
  - Hyperbilirubinaemia [Not Recovered/Not Resolved]
  - Pneumonia aspiration [Unknown]
  - Vomiting [Unknown]
  - Pyrexia [Unknown]
  - Oedema [Unknown]
